FAERS Safety Report 24137885 (Version 1)
Quarter: 2024Q3

REPORT INFORMATION
  Report Type: Spontaneous
  Country: US (occurrence: None)
  Receive Date: 20240725
  Receipt Date: 20240725
  Transmission Date: 20241016
  Serious: Yes (Hospitalization)
  Sender: Public
  Company Number: None

PATIENT
  Age: 70 Year
  Sex: Male
  Weight: 109 kg

DRUGS (4)
  1. CYCLOPHOSPHAMIDE [Suspect]
     Active Substance: CYCLOPHOSPHAMIDE
     Dates: end: 20231005
  2. CYTARABINE [Suspect]
     Active Substance: CYTARABINE
     Dates: end: 20231005
  3. DOXORUBICIN HYDROCHLORIDE [Suspect]
     Active Substance: DOXORUBICIN HYDROCHLORIDE
     Dates: end: 20231005
  4. PONATINIB [Suspect]
     Active Substance: PONATINIB
     Dates: end: 20231005

REACTIONS (1)
  - Neutropenia [None]

NARRATIVE: CASE EVENT DATE: 20240724
